FAERS Safety Report 10088751 (Version 1)
Quarter: 2014Q2

REPORT INFORMATION
  Report Type: Spontaneous
  Country: US (occurrence: US)
  Receive Date: 20140421
  Receipt Date: 20140421
  Transmission Date: 20141212
  Serious: No
  Sender: FDA-Public Use
  Company Number: US-BIOGENIDEC-2014BI033699

PATIENT
  Age: 35 Year
  Sex: Female

DRUGS (4)
  1. TECFIDERA [Suspect]
     Indication: MULTIPLE SCLEROSIS
     Route: 048
     Dates: start: 20140324
  2. MORPHINE SULFATE (PF) [Concomitant]
  3. MIRALAX [Concomitant]
  4. DICLOFENAC SODIUM [Concomitant]

REACTIONS (1)
  - Alopecia [Unknown]
